FAERS Safety Report 7069624-X (Version None)
Quarter: 2010Q4

REPORT INFORMATION
  Report Type: 
  Country: None (occurrence: None)
  Receive Date: 20101028
  Receipt Date: 20100412
  Transmission Date: 20110411
  Serious: No
  Sender: FDA-Public Use
  Company Number: US-WYE-H14670510

PATIENT
  Sex: Female
  Weight: 54.48 kg

DRUGS (4)
  1. PROTONIX [Suspect]
     Indication: GASTRITIS
     Dosage: UNKNOWN STRENGTH,  DAILY
     Route: 048
     Dates: start: 20100330, end: 20100401
  2. LEVOTHYROXINE [Concomitant]
  3. ADVIL [Suspect]
     Indication: SCIATICA
     Dosage: UNKNOWN
     Dates: end: 20100401
  4. AMLODIPINE [Concomitant]

REACTIONS (7)
  - ABDOMINAL PAIN UPPER [None]
  - CHILLS [None]
  - GASTROENTERITIS VIRAL [None]
  - MUSCLE SPASMS [None]
  - MYALGIA [None]
  - NAUSEA [None]
  - VOMITING [None]
